FAERS Safety Report 14206410 (Version 2)
Quarter: 2017Q4

REPORT INFORMATION
  Report Type: Spontaneous
  Country: JP (occurrence: JP)
  Receive Date: 20171120
  Receipt Date: 20171128
  Transmission Date: 20180321
  Serious: Yes (Hospitalization, Other)
  Sender: FDA-Public Use
  Company Number: JP-ELI_LILLY_AND_COMPANY-JP201711005656

PATIENT
  Age: 76 Year
  Sex: Male

DRUGS (2)
  1. INSULIN GLARGINE [Suspect]
     Active Substance: INSULIN GLARGINE
     Indication: TYPE 2 DIABETES MELLITUS
     Dosage: 9 IU, EACH EVENING
     Route: 058
  2. INSULIN ASPART [Suspect]
     Active Substance: INSULIN ASPART
     Indication: TYPE 2 DIABETES MELLITUS
     Dosage: 6IU IN THE MORNING, 9IU ON THE LUNCH, 6IU IN THE EVENING
     Route: 058

REACTIONS (3)
  - Hypoglycaemia [Recovering/Resolving]
  - Overdose [Unknown]
  - Hypoglycaemic encephalopathy [Not Recovered/Not Resolved]
